FAERS Safety Report 11459204 (Version 3)
Quarter: 2015Q4

REPORT INFORMATION
  Report Type: Report from Study
  Country: RO (occurrence: RO)
  Receive Date: 20150904
  Receipt Date: 20151002
  Transmission Date: 20160304
  Serious: Yes (Life-Threatening, Other)
  Sender: FDA-Public Use
  Company Number: RO-TEVA-590754ISR

PATIENT
  Age: 12 Year
  Sex: Female
  Weight: 38.2 kg

DRUGS (10)
  1. ONDANSETRON [Concomitant]
     Active Substance: ONDANSETRON
     Indication: ANTIEMETIC SUPPORTIVE CARE
     Dosage: 24 MILLIGRAM DAILY;
     Route: 042
     Dates: start: 20150812, end: 20150814
  2. DOXORUBICINUM [Suspect]
     Active Substance: DOXORUBICIN
     Indication: CHEMOTHERAPY
     Dosage: 50 MILLIGRAM DAILY; ENDOVENOUS PERFUSION
     Route: 040
     Dates: start: 20150812, end: 20150813
  3. DEXAMETHASONE. [Concomitant]
     Active Substance: DEXAMETHASONE
     Indication: ANTIINFLAMMATORY THERAPY
     Dosage: 8 MILLIGRAM DAILY;
     Route: 042
     Dates: start: 20150806, end: 20150813
  4. CISPLATINUM [Suspect]
     Active Substance: CISPLATIN
     Indication: CHEMOTHERAPY
     Dosage: 100 MILLIGRAM DAILY; ENDOVENOUS PERFUSION
     Route: 040
     Dates: start: 20150812, end: 20150812
  5. TBO-FILGRASTIM [Suspect]
     Active Substance: TBO-FILGRASTIM
     Indication: PROPHYLAXIS
     Dosage: 5 MICROGRAM/KG DAILY;
     Route: 058
     Dates: start: 20150814, end: 20150825
  6. MANITOLUM 20% [Concomitant]
     Indication: PROPHYLAXIS
     Dosage: 300 MILLIGRAM DAILY;
     Route: 040
     Dates: start: 20150812, end: 20150812
  7. ACETAMINOFEN [Concomitant]
     Active Substance: ACETAMINOPHEN
     Indication: ABDOMINAL PAIN
     Dosage: 500 MILLIGRAM DAILY; ENDOVENOUS PERFUSION
     Route: 040
     Dates: start: 20150825, end: 20150825
  8. KETOPROFEN. [Concomitant]
     Active Substance: KETOPROFEN
     Indication: ANTIINFLAMMATORY THERAPY
     Dosage: 100 MILLIGRAM DAILY;
     Route: 040
     Dates: start: 20150818, end: 20150823
  9. RANITIDINUM [Concomitant]
     Indication: PROPHYLAXIS AGAINST GASTROINTESTINAL ULCER
     Dosage: 50 MILLIGRAM DAILY;
     Route: 042
     Dates: start: 20150806, end: 20150813
  10. CEFTRIAXONUM [Concomitant]
     Indication: PROPHYLAXIS AGAINST GASTROINTESTINAL ULCER
     Dosage: 2 GRAM DAILY;
     Route: 042
     Dates: start: 20150806, end: 20150811

REACTIONS (3)
  - Gamma-glutamyltransferase increased [Recovered/Resolved]
  - Alanine aminotransferase increased [Recovered/Resolved]
  - Aspartate aminotransferase increased [Recovered/Resolved]

NARRATIVE: CASE EVENT DATE: 20150828
